FAERS Safety Report 7777251-1 (Version None)
Quarter: 2011Q3

REPORT INFORMATION
  Report Type: 
  Country: None (occurrence: None)
  Receive Date: 20110926
  Receipt Date: 20110915
  Transmission Date: 20111222
  Serious: Yes (Hospitalization)
  Sender: FDA-Public Use
  Company Number: PHHO2011DE07557

PATIENT
  Sex: Female
  Weight: 75 kg

DRUGS (1)
  1. ZOLEDRONIC [Suspect]
     Indication: BREAST CANCER
     Dosage: 4 MG, EVERY 3 MONTHS
     Route: 042
     Dates: start: 20070601, end: 20090401

REACTIONS (1)
  - OSTEONECROSIS OF JAW [None]
